FAERS Safety Report 6112361-6 (Version None)
Quarter: 2009Q1

REPORT INFORMATION
  Report Type: 
  Country: None (occurrence: None)
  Receive Date: 20090311
  Receipt Date: 20090311
  Transmission Date: 20090719
  Serious: No
  Sender: FDA-Public Use
  Company Number: None

PATIENT
  Age: 48 Year
  Sex: Female

DRUGS (1)
  1. DURAGESIC-50 [Suspect]
     Indication: PAIN
     Dosage: 50 MCG/HR Q 3 DAY TRANSDERMAL
     Route: 062

REACTIONS (1)
  - INAPPROPRIATE SCHEDULE OF DRUG ADMINISTRATION [None]
